FAERS Safety Report 24538501 (Version 1)
Quarter: 2024Q4

REPORT INFORMATION
  Report Type: Report from Study
  Country: BR (occurrence: BR)
  Receive Date: 20241023
  Receipt Date: 20241023
  Transmission Date: 20250115
  Serious: Yes (Other)
  Sender: BIOGEN
  Company Number: BR-BIOGEN-2024BI01287357

PATIENT
  Sex: Female

DRUGS (1)
  1. TYSABRI [Suspect]
     Active Substance: NATALIZUMAB
     Indication: Exposure via partner
     Route: 050
     Dates: start: 2021

REACTIONS (2)
  - Caesarean section [Recovered/Resolved]
  - Paternal exposure before pregnancy [Recovered/Resolved]
